FAERS Safety Report 7619280-4 (Version None)
Quarter: 2011Q3

REPORT INFORMATION
  Report Type: 
  Country: None (occurrence: None)
  Receive Date: 20110718
  Receipt Date: 20110706
  Transmission Date: 20111222
  Serious: Yes (Hospitalization, Other)
  Sender: FDA-Public Use
  Company Number: US-AMGEN-USASP2011034401

PATIENT
  Sex: Male

DRUGS (1)
  1. ENBREL [Suspect]
     Indication: RHEUMATOID ARTHRITIS
     Dosage: 50 MG, QWK
     Dates: start: 20110401

REACTIONS (7)
  - HYPERTENSION [None]
  - PNEUMONIA PRIMARY ATYPICAL [None]
  - VOMITING [None]
  - WEIGHT DECREASED [None]
  - INTESTINAL MASS [None]
  - ENTERITIS INFECTIOUS [None]
  - ABDOMINAL PAIN [None]
